FAERS Safety Report 24408769 (Version 1)
Quarter: 2024Q4

REPORT INFORMATION
  Report Type: Spontaneous
  Country: US (occurrence: US)
  Receive Date: 20241007
  Receipt Date: 20241007
  Transmission Date: 20250114
  Serious: No
  Sender: RECKITT BENCKISER
  Company Number: US-INDIVIOR US-INDV-145709-2024

PATIENT
  Sex: Female

DRUGS (1)
  1. SUBOXONE [Suspect]
     Active Substance: BUPRENORPHINE HYDROCHLORIDE\NALOXONE HYDROCHLORIDE
     Indication: Drug dependence
     Dosage: 2 MILLIGRAM, QD
     Route: 060
     Dates: start: 202211

REACTIONS (6)
  - Brain fog [Unknown]
  - Dizziness [Unknown]
  - Headache [Unknown]
  - Miosis [Unknown]
  - Nausea [Unknown]
  - Oral administration complication [Unknown]
